FAERS Safety Report 5975415-0 (Version None)
Quarter: 2008Q4

REPORT INFORMATION
  Report Type: 
  Country: None (occurrence: None)
  Receive Date: 20081202
  Receipt Date: 20071126
  Transmission Date: 20090506
  Serious: Yes (Other)
  Sender: FDA-Public Use
  Company Number: US-AMGEN-QUU253916

PATIENT
  Sex: Male

DRUGS (2)
  1. ENBREL [Suspect]
     Indication: PSORIASIS
     Route: 058
     Dates: start: 20061201, end: 20061201
  2. INDOCIN [Concomitant]

REACTIONS (2)
  - BLADDER CANCER [None]
  - BLOOD CREATININE INCREASED [None]
